FAERS Safety Report 4686106-0 (Version None)
Quarter: 2005Q2

REPORT INFORMATION
  Report Type: 
  Country: None (occurrence: None)
  Receive Date: 20050609
  Receipt Date: 20050517
  Transmission Date: 20051028
  Serious: Yes (Other)
  Sender: FDA-Public Use
  Company Number: US-GLAXOSMITHKLINE-A0558889A

PATIENT
  Age: 79 Year
  Sex: Female

DRUGS (13)
  1. GAVISCON [Suspect]
     Indication: DYSPEPSIA
     Dosage: 4TAB CUMULATIVE DOSE
     Route: 048
     Dates: start: 20050501
  2. COUMADIN [Concomitant]
  3. TUMS REGULAR TABLETS, PEPPERMINT [Concomitant]
     Indication: DYSPEPSIA
     Route: 048
     Dates: start: 20020101
  4. ROLAIDS [Concomitant]
     Indication: DYSPEPSIA
     Dates: start: 19850101
  5. SYNTHROID [Concomitant]
     Indication: HYPOTHYROIDISM
     Dosage: 50MG PER DAY
     Route: 048
  6. DIOVAN [Concomitant]
     Indication: BLOOD PRESSURE
     Route: 048
  7. TOPROL-XL [Concomitant]
     Indication: HYPERTENSION
     Route: 048
  8. DIGITEK [Concomitant]
     Indication: CARDIAC DISORDER
     Dosage: .25MG PER DAY
     Route: 048
  9. METHOTREXATE [Concomitant]
     Indication: ARTHRITIS
     Dosage: 2.5MG THREE TIMES PER WEEK
     Route: 048
  10. MULTI-VITAMIN [Concomitant]
     Indication: VITAMIN SUPPLEMENTATION
     Route: 048
  11. PREDNISONE TAB [Concomitant]
     Indication: ARTHRITIS
     Dosage: 5MG PER DAY
     Route: 048
  12. CALCIUM + D [Concomitant]
     Indication: MINERAL SUPPLEMENTATION
     Dosage: 600MG PER DAY
     Route: 048
  13. ULTRACET [Concomitant]
     Indication: PAIN
     Dosage: 37.5MG AS REQUIRED

REACTIONS (3)
  - COAGULOPATHY [None]
  - DRUG INTERACTION [None]
  - PROTHROMBIN TIME ABNORMAL [None]
